FAERS Safety Report 8308314-X (Version None)
Quarter: 2012Q2

REPORT INFORMATION
  Report Type: 
  Country: None (occurrence: None)
  Receive Date: 20120420
  Receipt Date: 20120410
  Transmission Date: 20120825
  Serious: Yes (Congenital Anomaly, Other)
  Sender: FDA-Public Use
  Company Number: AUR-APL-2012-01092

PATIENT
  Sex: Female

DRUGS (2)
  1. GABAPENTIN [Suspect]
     Indication: DIABETIC NEUROPATHY
     Dosage: 2700 MG (900 MG,3 IN 1 D),TRANSPLACENTAL
     Route: 064
     Dates: end: 20120311
  2. MORPHINE SULFATE [Concomitant]

REACTIONS (4)
  - HAEMANGIOMA OF SKIN [None]
  - PREMATURE BABY [None]
  - CAESAREAN SECTION [None]
  - MATERNAL DRUGS AFFECTING FOETUS [None]
